FAERS Safety Report 9494503 (Version 4)
Quarter: 2013Q4

REPORT INFORMATION
  Report Type: Spontaneous
  Country: US (occurrence: US)
  Receive Date: 20130903
  Receipt Date: 20131113
  Transmission Date: 20140711
  Serious: Yes (Death)
  Sender: FDA-Public Use
  Company Number: US-ASTELLAS-2013US009295

PATIENT
  Age: 79 Year
  Sex: Male

DRUGS (5)
  1. XTANDI [Suspect]
     Indication: PROSTATE CANCER
     Dosage: 160 MG, UID/QD
     Route: 048
     Dates: start: 201307, end: 201308
  2. LASIX                              /00032601/ [Concomitant]
     Indication: PRODUCT USED FOR UNKNOWN INDICATION
     Dosage: 80 MG, BID
     Route: 048
  3. NORVASC [Concomitant]
     Indication: PRODUCT USED FOR UNKNOWN INDICATION
     Dosage: 2.5 MG, MONDAY AND THURSDAY
     Route: 065
     Dates: end: 20130627
  4. IMDUR [Concomitant]
     Indication: ANGINA PECTORIS
     Dosage: 60 MG, UID/QD
     Route: 048
     Dates: start: 20130627
  5. IMDUR [Concomitant]
     Indication: CARDIAC FAILURE
     Dosage: 30 MG, UID/QD
     Route: 048
     Dates: start: 20130521, end: 20130627

REACTIONS (4)
  - Cardiac failure congestive [Fatal]
  - Cardiomyopathy [Fatal]
  - Coronary artery disease [Fatal]
  - Fluid overload [Unknown]
